FAERS Safety Report 18802156 (Version 1)
Quarter: 2021Q1

REPORT INFORMATION
  Report Type: Spontaneous
  Country: FR (occurrence: FR)
  Receive Date: 20210128
  Receipt Date: 20210128
  Transmission Date: 20210419
  Serious: Yes (Life-Threatening)
  Sender: FDA-Public Use
  Company Number: FR-MYLANLABS-2021M1005150

PATIENT
  Age: 87 Year
  Sex: Male
  Weight: 80 kg

DRUGS (2)
  1. MIDAZOLAM. [Suspect]
     Active Substance: MIDAZOLAM
     Indication: PAIN
     Dosage: 8 MILLIGRAM, QH
     Route: 042
     Dates: start: 20201029, end: 20201029
  2. OXYCODONE [Suspect]
     Active Substance: OXYCODONE
     Indication: PAIN
     Dosage: 0.8 MEGA?INTERNATIONAL UNIT, QH
     Route: 058
     Dates: start: 202009, end: 202010

REACTIONS (3)
  - Overdose [Recovered/Resolved]
  - Coma [Recovered/Resolved]
  - Wrong rate [Recovered/Resolved]

NARRATIVE: CASE EVENT DATE: 20201029
